FAERS Safety Report 4299019-3 (Version None)
Quarter: 2004Q1

REPORT INFORMATION
  Report Type: 
  Country: None (occurrence: None)
  Receive Date: 20040217
  Receipt Date: 20040205
  Transmission Date: 20041129
  Serious: Yes (Hospitalization, Other)
  Sender: FDA-Public Use
  Company Number: 2004-01-1605

PATIENT
  Age: 13 Month
  Sex: Female

DRUGS (9)
  1. CELESTENE (BETAMETHASONE) ORAL SOLUTION [Suspect]
     Indication: URTICARIA
     Dosage: ORAL
     Route: 048
     Dates: start: 20031208, end: 20031209
  2. POLARAMINE [Concomitant]
  3. URTICARIA [Concomitant]
  4. MORPHINE ORALS [Concomitant]
  5. PARACETAMOL [Concomitant]
  6. MIDAZOLAM HCL [Concomitant]
  7. DUPHALAC [Concomitant]
  8. ORAL REHYDRATION SALT [Concomitant]
  9. TOBREX LOTION [Concomitant]

REACTIONS (2)
  - STAPHYLOCOCCAL INFECTION [None]
  - TOXIC EPIDERMAL NECROLYSIS [None]
